FAERS Safety Report 8950575 (Version 1)
Quarter: 2012Q4

REPORT INFORMATION
  Report Type: Spontaneous
  Country: US (occurrence: None)
  Receive Date: 20121204
  Receipt Date: 20121204
  Transmission Date: 20130627
  Serious: Yes (Life-Threatening)
  Sender: FDA-Public Use
  Company Number: None

PATIENT
  Age: 71 Year
  Sex: Female
  Weight: 77.11 kg

DRUGS (1)
  1. DEX4 15GRAMS PERRIGO [Suspect]
     Indication: DIABETES
     Dates: start: 20121107, end: 20121129

REACTIONS (1)
  - Product container seal issue [None]
